FAERS Safety Report 4451631-4 (Version None)
Quarter: 2004Q3

REPORT INFORMATION
  Report Type: 
  Country: None (occurrence: None)
  Receive Date: 20040915
  Receipt Date: 20040831
  Transmission Date: 20050211
  Serious: Yes (Disabling, Other)
  Sender: FDA-Public Use
  Company Number: 2004-0007437

PATIENT
  Age: 41 Year
  Sex: Male

DRUGS (6)
  1. VIREAD [Suspect]
     Indication: HIV INFECTION
     Dosage: ORAL (SEE IMAGE)
     Route: 048
     Dates: start: 20020401, end: 20020801
  2. VIREAD [Suspect]
     Indication: HIV INFECTION
     Dosage: ORAL (SEE IMAGE)
     Route: 048
     Dates: start: 20020901
  3. DIDANOSINE [Concomitant]
  4. LOPINAVIR [Concomitant]
  5. RITONAVIR [Concomitant]
  6. SAQUINAVIR [Concomitant]

REACTIONS (8)
  - BUCCAL CAVITY PAPILLOMA [None]
  - CONDITION AGGRAVATED [None]
  - HIV INFECTION [None]
  - IMMUNE RECONSTITUTION SYNDROME [None]
  - MALE SEXUAL DYSFUNCTION [None]
  - NAUSEA [None]
  - PEYRONIE'S DISEASE [None]
  - TREATMENT NONCOMPLIANCE [None]
